FAERS Safety Report 12927593 (Version 1)
Quarter: 2016Q4

REPORT INFORMATION
  Report Type: Spontaneous
  Country: GB (occurrence: GB)
  Receive Date: 20161109
  Receipt Date: 20161109
  Transmission Date: 20170207
  Serious: Yes (Death)
  Sender: FDA-Public Use
  Company Number: GB-INTERNATIONAL MEDICATION SYSTEMS, LIMITED-1059392

PATIENT
  Age: 39 Year

DRUGS (3)
  1. MORPHINE [Suspect]
     Active Substance: MORPHINE
     Route: 065
  2. DIAZEPAM. [Suspect]
     Active Substance: DIAZEPAM
  3. MATRIFEN [Suspect]
     Active Substance: FENTANYL
     Route: 062

REACTIONS (2)
  - Toxicity to various agents [None]
  - Death [None]
